FAERS Safety Report 6334272-3 (Version None)
Quarter: 2009Q3

REPORT INFORMATION
  Report Type: 
  Country: None (occurrence: None)
  Receive Date: 20090829
  Receipt Date: 20090813
  Transmission Date: 20100115
  Serious: No
  Sender: FDA-Public Use
  Company Number: US-ABBOTT-09P-163-0591764-00

PATIENT
  Sex: Female
  Weight: 55.388 kg

DRUGS (2)
  1. SIMCOR [Suspect]
     Indication: BLOOD CHOLESTEROL INCREASED
     Dosage: DAILY AT HOUR OF SLEEP
     Route: 048
     Dates: start: 20090701
  2. IBUPROFEN [Concomitant]
     Indication: DRUG USE FOR UNKNOWN INDICATION
     Dosage: AT NIGHT, HALF HOUR BEFORE SIMCOR DOSE
     Route: 048

REACTIONS (1)
  - NAUSEA [None]
